FAERS Safety Report 8512028-0 (Version None)
Quarter: 2012Q3

REPORT INFORMATION
  Report Type: 
  Country: None (occurrence: None)
  Receive Date: 20120716
  Receipt Date: 20120710
  Transmission Date: 20120928
  Serious: Yes (Other)
  Sender: FDA-Public Use
  Company Number: US-BAYER-2012-006456

PATIENT
  Age: 27 Year
  Sex: Female
  Weight: 54.422 kg

DRUGS (6)
  1. PHENERGAN HCL [Concomitant]
  2. PREVACID [Concomitant]
  3. NSAID'S [Concomitant]
     Dosage: UNK
     Dates: start: 20020101
  4. PERCOCET [Concomitant]
  5. YASMIN [Suspect]
     Indication: CONTRACEPTION
     Dosage: UNK
     Dates: start: 20070515, end: 20090210
  6. YAZ [Suspect]
     Indication: CONTRACEPTION
     Dosage: UNK
     Dates: start: 20090210, end: 20090210

REACTIONS (3)
  - CHOLECYSTITIS CHRONIC [None]
  - GALLBLADDER DISORDER [None]
  - INJURY [None]
